FAERS Safety Report 20619021 (Version 1)
Quarter: 2022Q1

REPORT INFORMATION
  Report Type: Spontaneous
  Country: IN (occurrence: IN)
  Receive Date: 20220322
  Receipt Date: 20220322
  Transmission Date: 20220424
  Serious: Yes (Hospitalization)
  Sender: FDA-Public Use
  Company Number: IN-SUN PHARMACEUTICAL INDUSTRIES LTD-2022R1-326367

PATIENT
  Age: 52 Year
  Sex: Female

DRUGS (3)
  1. OXALIPLATIN [Suspect]
     Active Substance: OXALIPLATIN
     Indication: Rectal cancer
     Dosage: 130 MILLIGRAM/SQ. METER
     Route: 065
  2. OXALIPLATIN [Suspect]
     Active Substance: OXALIPLATIN
     Dosage: 85 MILLIGRAM/SQ. METER
     Route: 065
  3. CAPECITABINE [Concomitant]
     Active Substance: CAPECITABINE
     Indication: Rectal cancer
     Dosage: 2000 MILLIGRAM/SQ. METER
     Route: 065

REACTIONS (5)
  - Toxicity to various agents [Unknown]
  - Dysarthria [Unknown]
  - Dysaesthesia pharynx [Recovered/Resolved]
  - Pain in jaw [Unknown]
  - Paraesthesia oral [Unknown]
